FAERS Safety Report 22050409 (Version 2)
Quarter: 2023Q2

REPORT INFORMATION
  Report Type: Spontaneous
  Country: IN (occurrence: IN)
  Receive Date: 20230301
  Receipt Date: 20230412
  Transmission Date: 20230722
  Serious: Yes (Other)
  Sender: FDA-Public Use
  Company Number: IN-PFIZER INC-202200483268

PATIENT
  Age: 52 Year
  Sex: Female

DRUGS (2)
  1. DACOMITINIB [Suspect]
     Active Substance: DACOMITINIB
     Indication: Non-small cell lung cancer metastatic
     Dosage: 45 MG, 1X/DAY
     Route: 048
     Dates: start: 202201, end: 20220209
  2. DACOMITINIB [Suspect]
     Active Substance: DACOMITINIB
     Dosage: 30 MG, 1X/DAY
     Route: 048
     Dates: start: 20220210

REACTIONS (5)
  - Platelet count decreased [Recovered/Resolved]
  - Rash [Recovering/Resolving]
  - Diarrhoea [Recovered/Resolved]
  - Mouth ulceration [Recovering/Resolving]
  - Paronychia [Unknown]

NARRATIVE: CASE EVENT DATE: 20220202
